FAERS Safety Report 25531544 (Version 1)
Quarter: 2025Q3

REPORT INFORMATION
  Report Type: Spontaneous
  Country: CN (occurrence: CN)
  Receive Date: 20250709
  Receipt Date: 20250709
  Transmission Date: 20251020
  Serious: Yes (Other)
  Sender: BRACCO
  Company Number: CN-BRACCO-2025CN04510

PATIENT
  Age: 63 Year
  Sex: Female

DRUGS (3)
  1. SULPHUR HEXAFLUORIDE [Suspect]
     Active Substance: SULFUR HEXAFLUORIDE
     Indication: Ultrasound scan
     Route: 042
     Dates: start: 20250616, end: 20250616
  2. SULPHUR HEXAFLUORIDE [Suspect]
     Active Substance: SULFUR HEXAFLUORIDE
     Indication: Ultrasound scan
     Route: 042
     Dates: start: 20250616, end: 20250616
  3. SULPHUR HEXAFLUORIDE [Suspect]
     Active Substance: SULFUR HEXAFLUORIDE
     Indication: Ultrasound scan
     Route: 042
     Dates: start: 20250616, end: 20250616

REACTIONS (1)
  - Haemorrhage [Recovered/Resolved]

NARRATIVE: CASE EVENT DATE: 20250616
